FAERS Safety Report 10062334 (Version 1)
Quarter: 2014Q2

REPORT INFORMATION
  Report Type: Spontaneous
  Country: US (occurrence: US)
  Receive Date: 20140407
  Receipt Date: 20140407
  Transmission Date: 20141212
  Serious: No
  Sender: FDA-Public Use
  Company Number: US-GLAXOSMITHKLINE-A1063363A

PATIENT
  Sex: Male
  Weight: 187.7 kg

DRUGS (3)
  1. BENLYSTA [Suspect]
     Indication: SYSTEMIC LUPUS ERYTHEMATOSUS
     Route: 042
     Dates: start: 201402
  2. SOLUMEDROL [Concomitant]
  3. PREDNISONE [Concomitant]

REACTIONS (1)
  - Pruritus generalised [Unknown]
